FAERS Safety Report 7268189-7 (Version None)
Quarter: 2011Q1

REPORT INFORMATION
  Report Type: 
  Country: None (occurrence: None)
  Receive Date: 20110124
  Receipt Date: 20110111
  Transmission Date: 20110831
  Serious: Yes (Other)
  Sender: FDA-Public Use
  Company Number: GB-ACCORD-004853

PATIENT
  Age: 63 Year
  Sex: Male

DRUGS (3)
  1. CARBOPLATIN [Suspect]
     Indication: TRANSITIONAL CELL CARCINOMA
  2. GEMCITABINE [Suspect]
     Indication: TRANSITIONAL CELL CARCINOMA
     Dosage: 1000.00-MG/M2
  3. PACLITAXEL [Suspect]
     Indication: TRANSITIONAL CELL CARCINOMA
     Dosage: 110.00-MG/M2

REACTIONS (14)
  - TUMOUR INVASION [None]
  - METASTASES TO SMALL INTESTINE [None]
  - METASTASES TO LIVER [None]
  - METASTASES TO LUNG [None]
  - THROMBOCYTOPENIA [None]
  - ARTERIOVENOUS FISTULA [None]
  - HAEMOPTYSIS [None]
  - NEOPLASM MALIGNANT [None]
  - PLEURAL EFFUSION [None]
  - NEUTROPENIA [None]
  - OFF LABEL USE [None]
  - METASTASES TO PERIPHERAL VASCULAR SYSTEM [None]
  - HAEMODIALYSIS [None]
  - METASTASES TO SPLEEN [None]
